FAERS Safety Report 13076165 (Version 1)
Quarter: 2016Q4

REPORT INFORMATION
  Report Type: Spontaneous
  Country: US (occurrence: US)
  Receive Date: 20161230
  Receipt Date: 20161230
  Transmission Date: 20170207
  Serious: No
  Sender: FDA-Public Use
  Company Number: US-SUPERNUS PHARMACEUTICALS, INC.-2016SUP00100

PATIENT
  Age: 66 Year
  Sex: Female
  Weight: 65.76 kg

DRUGS (13)
  1. OXTELLAR XR [Suspect]
     Active Substance: OXCARBAZEPINE
     Indication: PAIN IN EXTREMITY
  2. OXTELLAR XR [Suspect]
     Active Substance: OXCARBAZEPINE
     Indication: RHEUMATOID ARTHRITIS
     Dosage: 600 MG, 1X/DAY
     Route: 048
     Dates: start: 20160510
  3. OXTELLAR XR [Suspect]
     Active Substance: OXCARBAZEPINE
     Indication: BACK PAIN
  4. VITAMIN D 5000 [Concomitant]
  5. BIOTIN [Concomitant]
     Active Substance: BIOTIN
  6. HAIR, NAILS, AND SKIN VITAMIN [Concomitant]
  7. OXTELLAR XR [Suspect]
     Active Substance: OXCARBAZEPINE
     Indication: RHEUMATOID ARTHRITIS
     Dosage: 300 MG, 1X/DAY
     Route: 048
     Dates: start: 20160508, end: 20160509
  8. OXTELLAR XR [Suspect]
     Active Substance: OXCARBAZEPINE
     Indication: BACK PAIN
  9. PROSCAR [Concomitant]
     Active Substance: FINASTERIDE
  10. OXTELLAR XR [Suspect]
     Active Substance: OXCARBAZEPINE
     Indication: BACK PAIN
  11. OXTELLAR XR [Suspect]
     Active Substance: OXCARBAZEPINE
     Indication: PAIN IN EXTREMITY
  12. OXTELLAR XR [Suspect]
     Active Substance: OXCARBAZEPINE
     Indication: RHEUMATOID ARTHRITIS
     Dosage: 150 MG, 1X/DAY
     Route: 048
     Dates: start: 20160506, end: 20160507
  13. OXTELLAR XR [Suspect]
     Active Substance: OXCARBAZEPINE
     Indication: PAIN IN EXTREMITY

REACTIONS (3)
  - Pruritus [Not Recovered/Not Resolved]
  - Off label use [Not Recovered/Not Resolved]
  - Rash papular [Not Recovered/Not Resolved]

NARRATIVE: CASE EVENT DATE: 20160506
